FAERS Safety Report 14997612 (Version 1)
Quarter: 2018Q2

REPORT INFORMATION
  Report Type: Spontaneous
  Country: US (occurrence: US)
  Receive Date: 20180611
  Receipt Date: 20180611
  Transmission Date: 20180711
  Serious: No
  Sender: FDA-Public Use
  Company Number: US-ALLERGAN-1808849US

PATIENT
  Sex: Female

DRUGS (1)
  1. VIBERZI [Suspect]
     Active Substance: ELUXADOLINE
     Indication: IRRITABLE BOWEL SYNDROME
     Dosage: 25 MG, EVERY OTHER DAY
     Route: 048
     Dates: start: 20160213

REACTIONS (2)
  - Contraindicated drug prescribed [Unknown]
  - Inappropriate schedule of drug administration [Unknown]
